FAERS Safety Report 4407425-9 (Version None)
Quarter: 2004Q3

REPORT INFORMATION
  Report Type: 
  Country: None (occurrence: None)
  Receive Date: 20040723
  Receipt Date: 20040723
  Transmission Date: 20050211
  Serious: Yes (Life-Threatening, Hospitalization)
  Sender: FDA-Public Use
  Company Number: None

PATIENT
  Age: 61 Year
  Sex: Male
  Weight: 90 kg

DRUGS (12)
  1. CETUXIMAB (ERBITUX) [Suspect]
     Indication: COLON CANCER
     Dosage: 812 MG IV
     Route: 042
     Dates: start: 20040720
  2. CETUXIMAB (ERBITUX) [Suspect]
     Indication: RECTAL CANCER
     Dosage: 812 MG IV
     Route: 042
     Dates: start: 20040720
  3. CITALOPRAM [Concomitant]
  4. ALPRAZOLAM [Concomitant]
  5. OXYCONTIN [Concomitant]
  6. TEMAZEPAM [Concomitant]
  7. ASPIRIN [Concomitant]
  8. MULTI-VITAMIN [Concomitant]
  9. FOSINOPRIL SODIUM [Concomitant]
  10. TERAZOSIN HCL [Concomitant]
  11. ATENOLOL [Concomitant]
  12. HYDROCHLOROTHIAZIDE [Concomitant]

REACTIONS (1)
  - MENINGITIS [None]
